FAERS Safety Report 6146026-1 (Version None)
Quarter: 2009Q2

REPORT INFORMATION
  Report Type: 
  Country: None (occurrence: None)
  Receive Date: 20090407
  Receipt Date: 20090327
  Transmission Date: 20091009
  Serious: Yes (Other)
  Sender: FDA-Public Use
  Company Number: JP-ELI_LILLY_AND_COMPANY-JP200902007209

PATIENT
  Age: 72 Year
  Sex: Female

DRUGS (5)
  1. EVISTA [Suspect]
     Dosage: 60 MG, DAILY (1/D)
     Route: 048
     Dates: start: 20060101, end: 20090130
  2. SERMION [Concomitant]
     Dosage: 5 MG, DAILY (1/D)
     Route: 048
  3. KETAS [Concomitant]
     Indication: CEREBRAL INFARCTION
     Dosage: 10 MG, DAILY (1/D)
     Route: 048
  4. OLMETEC [Concomitant]
     Dosage: 20 MG, DAILY (1/D)
     Route: 048
  5. ADALAT CR /SCH/ [Concomitant]
     Indication: HYPERTENSION
     Dosage: 20 MG, DAILY (1/D)
     Route: 048

REACTIONS (1)
  - OSTEITIS [None]
